FAERS Safety Report 17225672 (Version 1)
Quarter: 2019Q4

REPORT INFORMATION
  Report Type: Spontaneous
  Country: US (occurrence: US)
  Receive Date: 20191210
  Receipt Date: 20191210
  Transmission Date: 20200122
  Serious: Yes (Hospitalization)
  Sender: FDA-Public Use
  Company Number: None

PATIENT
  Age: 2 Year
  Sex: 0

DRUGS (1)
  1. SILDENAFIL. [Suspect]
     Active Substance: SILDENAFIL
     Indication: CONGENITAL CARDIOVASCULAR ANOMALY
     Dosage: ?          OTHER FREQUENCY:EVERY8HOURS ;?
     Route: 048
     Dates: start: 20190507

REACTIONS (2)
  - Therapy cessation [None]
  - Catheterisation cardiac [None]
